FAERS Safety Report 7811695 (Version 4)
Quarter: 2018Q3

REPORT INFORMATION
  Report Type: Report from Study
  Country: JP (occurrence: JP)
  Receive Date: 20110214
  Receipt Date: 20180806
  Transmission Date: 20181010
  Serious: Yes (Other)
  Sender: FDA-Public Use
  Company Number: PHHY2011JP08768

PATIENT
  Sex: Female

DRUGS (18)
  1. SANDIMMUNE [Suspect]
     Active Substance: CYCLOSPORINE
     Indication: HEART TRANSPLANT
     Dosage: UNK
     Route: 048
  2. NEORAL [Interacting]
     Active Substance: CYCLOSPORINE
     Indication: HEART TRANSPLANT
     Dosage: 200 MG, UNK
     Route: 048
     Dates: start: 20080812
  3. NEORAL [Interacting]
     Active Substance: CYCLOSPORINE
     Dosage: 140 MG, UNK
     Route: 048
     Dates: start: 20081208
  4. CELLCEPT [Suspect]
     Active Substance: MYCOPHENOLATE MOFETIL\MYCOPHENOLATE MOFETIL HYDROCHLORIDE
     Indication: HEART TRANSPLANT
     Dosage: 500 MG
     Route: 048
     Dates: start: 20080722, end: 20110210
  5. TACROLIMUS. [Concomitant]
     Active Substance: TACROLIMUS
     Dosage: 3 MG, UNK
     Route: 065
  6. TACROLIMUS. [Concomitant]
     Active Substance: TACROLIMUS
     Dosage: 3.4 MG, UNK
     Route: 065
  7. SANDIMMUNE [Suspect]
     Active Substance: CYCLOSPORINE
     Dosage: 280 MG, QD
     Route: 048
     Dates: start: 20080722, end: 20080811
  8. NEORAL [Interacting]
     Active Substance: CYCLOSPORINE
     Dosage: 220 MG, UNK
     Route: 048
     Dates: start: 20090327
  9. SANDIMMUNE [Suspect]
     Active Substance: CYCLOSPORINE
     Dosage: 1.5 MG, UNK
     Route: 048
  10. NEORAL [Interacting]
     Active Substance: CYCLOSPORINE
     Dosage: 200 MG, UNK
     Route: 048
     Dates: start: 20090205
  11. TACROLIMUS. [Concomitant]
     Active Substance: TACROLIMUS
     Indication: HEART TRANSPLANT
     Dosage: 4 MG, UNK
     Route: 065
  12. PREDONINE [Suspect]
     Active Substance: PREDNISOLONE
     Indication: HEART TRANSPLANT
     Dosage: 10 MG?5MG/DAY, UNK
     Route: 048
     Dates: start: 20080722
  13. NEORAL [Interacting]
     Active Substance: CYCLOSPORINE
     Dosage: 220 MG, UNK
     Route: 048
     Dates: start: 20100414
  14. NEORAL [Interacting]
     Active Substance: CYCLOSPORINE
     Dosage: 220 MG, UNK
     Route: 048
     Dates: start: 20100804, end: 20100930
  15. EVEROLIMUS. [Interacting]
     Active Substance: EVEROLIMUS
     Indication: HEART TRANSPLANT REJECTION
     Dosage: UNK
     Route: 065
  16. NEORAL [Interacting]
     Active Substance: CYCLOSPORINE
     Dosage: 240 MG, UNK
     Route: 048
     Dates: start: 20100218
  17. NEORAL [Interacting]
     Active Substance: CYCLOSPORINE
     Dosage: 200 MG, UNK
     Route: 048
     Dates: start: 20100609
  18. NEORAL [Interacting]
     Active Substance: CYCLOSPORINE
     Dosage: 225 MG, UNK
     Route: 048

REACTIONS (7)
  - Heart transplant rejection [Recovered/Resolved]
  - Malaise [Unknown]
  - Nephropathy toxic [Recovering/Resolving]
  - Focal nodular hyperplasia [Recovering/Resolving]
  - Hepatic neoplasm [Recovered/Resolved]
  - Renal impairment [Recovering/Resolving]
  - Back pain [Recovering/Resolving]
